FAERS Safety Report 5901927-1 (Version None)
Quarter: 2008Q3

REPORT INFORMATION
  Report Type: 
  Country: None (occurrence: None)
  Receive Date: 20080929
  Receipt Date: 20080306
  Transmission Date: 20090109
  Serious: No
  Sender: FDA-Public Use
  Company Number: US-BRISTOL-MYERS SQUIBB COMPANY-14106926

PATIENT
  Sex: Female

DRUGS (1)
  1. BUSPAR [Suspect]

REACTIONS (3)
  - DYSGEUSIA [None]
  - NAUSEA [None]
  - PAROSMIA [None]
